FAERS Safety Report 15655617 (Version 2)
Quarter: 2018Q4

REPORT INFORMATION
  Report Type: Spontaneous
  Country: FI (occurrence: FI)
  Receive Date: 20181126
  Receipt Date: 20181222
  Transmission Date: 20190205
  Serious: No
  Sender: FDA-Public Use
  Company Number: FI-009507513-1811FIN007627

PATIENT
  Age: 31 Year
  Sex: Male

DRUGS (5)
  1. TEMODAL [Suspect]
     Active Substance: TEMOZOLOMIDE
     Indication: GLIOMATOSIS CEREBRI
     Dosage: 280 MILLIGRAM, FOR 5 DAYS WITH 28 DAYS CYCLE INTERVALS (FIRST CYCLE)
     Route: 048
     Dates: start: 200902, end: 2009
  2. TEMODAL [Suspect]
     Active Substance: TEMOZOLOMIDE
     Dosage: UNK,  FOR 5 DAYS WITH 28 DAYS CYCLE INTERVALS
     Route: 048
     Dates: start: 201302, end: 201304
  3. TEMODAL [Suspect]
     Active Substance: TEMOZOLOMIDE
     Dosage: 140 MILLIGRAM, QD
     Route: 048
     Dates: start: 201306, end: 201307
  4. LEVETIRACETAM. [Concomitant]
     Active Substance: LEVETIRACETAM
     Indication: EPILEPSY
     Dosage: UNK
  5. TEMODAL [Suspect]
     Active Substance: TEMOZOLOMIDE
     Indication: RADIOSENSITISATION THERAPY
     Dosage: 380 MILLIGRAM,  FOR 5 DAYS WITH 28 DAYS CYCLE INTERVALS
     Route: 048
     Dates: start: 2009, end: 200909

REACTIONS (2)
  - Drug ineffective [Unknown]
  - Nausea [Recovered/Resolved]

NARRATIVE: CASE EVENT DATE: 2009
